FAERS Safety Report 6130993-6 (Version None)
Quarter: 2009Q1

REPORT INFORMATION
  Report Type: 
  Country: None (occurrence: None)
  Receive Date: 20090325
  Receipt Date: 20090310
  Transmission Date: 20090719
  Serious: Yes (Death)
  Sender: FDA-Public Use
  Company Number: ES-PFIZER INC-2007079169

PATIENT

DRUGS (3)
  1. LYRICA [Suspect]
     Indication: POLYNEUROPATHY
     Route: 048
     Dates: start: 20070713
  2. LYRICA [Suspect]
     Indication: NEUROPATHY PERIPHERAL
  3. METFORMIN [Suspect]
     Route: 048
     Dates: start: 20070713

REACTIONS (3)
  - INFARCTION [None]
  - OROPHARYNGEAL PAIN [None]
  - SUDDEN DEATH [None]
